FAERS Safety Report 18812900 (Version 1)
Quarter: 2021Q1

REPORT INFORMATION
  Report Type: Spontaneous
  Country: US (occurrence: US)
  Receive Date: 20210131
  Receipt Date: 20210131
  Transmission Date: 20210419
  Serious: Yes (Other)
  Sender: FDA-Public Use
  Company Number: US-PURDUE-USA-2020-0193304

PATIENT
  Sex: Male

DRUGS (2)
  1. OXYCONTIN [Suspect]
     Active Substance: OXYCODONE HYDROCHLORIDE
     Indication: INJURY
     Dosage: 20 MG,
     Route: 048
     Dates: start: 1996
  2. PERCOCET                           /00446701/ [Suspect]
     Active Substance: ACETAMINOPHEN\OXYCODONE HYDROCHLORIDE\OXYCODONE TEREPHTHALATE
     Indication: INJURY
     Dosage: UNK, Q4H
     Route: 048

REACTIONS (5)
  - Drug dependence [Unknown]
  - Insomnia [Unknown]
  - Abdominal discomfort [Unknown]
  - Nightmare [Unknown]
  - Night sweats [Unknown]
